FAERS Safety Report 16379466 (Version 2)
Quarter: 2019Q2

REPORT INFORMATION
  Report Type: Spontaneous
  Country: GB (occurrence: GB)
  Receive Date: 20190531
  Receipt Date: 20190620
  Transmission Date: 20190711
  Serious: Yes (Hospitalization, Other)
  Sender: FDA-Public Use
  Company Number: GB-MYLANLABS-2019M1050869

PATIENT
  Age: 85 Year
  Sex: Female

DRUGS (12)
  1. CLENIL MODULITE [Concomitant]
     Active Substance: BECLOMETHASONE DIPROPIONATE
     Dosage: 100
  2. LOSARTAN POTASSIUM. [Concomitant]
     Active Substance: LOSARTAN POTASSIUM
     Dosage: UNK
  3. CLARITHROMYCIN. [Suspect]
     Active Substance: CLARITHROMYCIN
     Indication: LOWER RESPIRATORY TRACT INFECTION
     Dosage: UNK
     Route: 048
     Dates: start: 20170113, end: 20170119
  4. ATROPINE. [Concomitant]
     Active Substance: ATROPINE
     Dosage: UNK
     Route: 047
  5. SIMVASTATIN. [Concomitant]
     Active Substance: SIMVASTATIN
     Dosage: 20 MILLIGRAM, QD
  6. FUROSEMIDE. [Concomitant]
     Active Substance: FUROSEMIDE
     Dosage: WITHHELD.
  7. WARFARIN [Suspect]
     Active Substance: WARFARIN
     Indication: ATRIAL FIBRILLATION
     Dosage: AS PER INTERNATIONAL NORMALIZED RATIO. INDEFINITE DURATION.
     Route: 048
  8. DEXAMETHASONE. [Concomitant]
     Active Substance: DEXAMETHASONE
     Dosage: UNK
     Route: 047
  9. DOXYCYCLINE. [Suspect]
     Active Substance: DOXYCYCLINE
     Indication: LOWER RESPIRATORY TRACT INFECTION
     Dosage: UNK
     Route: 048
     Dates: start: 20170105, end: 20170111
  10. SALBUTAMOL [Concomitant]
     Active Substance: ALBUTEROL
     Dosage: UNK
     Route: 055
  11. BISOPROLOL [Concomitant]
     Active Substance: BISOPROLOL
     Dosage: UNK
  12. DIGOXIN. [Concomitant]
     Active Substance: DIGOXIN
     Dosage: 62.5 MICROGRAM, QD

REACTIONS (10)
  - Melaena [Unknown]
  - Drug interaction [Unknown]
  - Drug monitoring procedure not performed [Unknown]
  - Upper gastrointestinal haemorrhage [Recovered/Resolved]
  - Pyrexia [Unknown]
  - Dyspnoea [Unknown]
  - Haematuria [Recovered/Resolved]
  - Acute kidney injury [Recovered/Resolved]
  - Hypovolaemia [Unknown]
  - Confusional state [Unknown]

NARRATIVE: CASE EVENT DATE: 20170105
